FAERS Safety Report 17356243 (Version 1)
Quarter: 2020Q1

REPORT INFORMATION
  Report Type: Spontaneous
  Country: US (occurrence: US)
  Receive Date: 20200116
  Receipt Date: 20200116
  Transmission Date: 20200409
  Serious: Yes (Hospitalization, Other)
  Sender: FDA-Public Use
  Company Number: None

PATIENT
  Age: 21 Year
  Sex: Female
  Weight: 72.6 kg

DRUGS (10)
  1. TYLENOL [Concomitant]
     Active Substance: ACETAMINOPHEN
  2. DOXYCYCLINE. [Concomitant]
     Active Substance: DOXYCYCLINE
  3. HYDROCORTISONE. [Concomitant]
     Active Substance: HYDROCORTISONE
  4. MELATONIN [Concomitant]
     Active Substance: MELATONIN
  5. PROCHLORPERAZINE. [Concomitant]
     Active Substance: PROCHLORPERAZINE
  6. DOCUSATE [Concomitant]
     Active Substance: DOCUSATE
  7. BINIMETINIB [Suspect]
     Active Substance: BINIMETINIB
     Indication: NEUROFIBROMA
     Route: 048
     Dates: start: 20191205, end: 20200114
  8. SENNA [Concomitant]
     Active Substance: SENNA LEAF\SENNOSIDES\SENNOSIDES A AND B
  9. MICONAZOLE (MONSTAT) [Concomitant]
  10. IBUPROFEN. [Concomitant]
     Active Substance: IBUPROFEN

REACTIONS (5)
  - Anaemia [None]
  - Headache [None]
  - Menorrhagia [None]
  - Tachycardia [None]
  - Palpitations [None]

NARRATIVE: CASE EVENT DATE: 20200113
